FAERS Safety Report 10707950 (Version 3)
Quarter: 2015Q3

REPORT INFORMATION
  Report Type: Report from Study
  Country: BR (occurrence: BR)
  Receive Date: 20150113
  Receipt Date: 20150805
  Transmission Date: 20151125
  Serious: Yes (Hospitalization, Other)
  Sender: FDA-Public Use
  Company Number: PHHY2015BR003178

PATIENT
  Sex: Male
  Weight: 70 kg

DRUGS (7)
  1. LEVODOPA [Concomitant]
     Active Substance: LEVODOPA
     Indication: PARKINSON^S DISEASE
     Dosage: 0.25 DF, TID
     Route: 065
     Dates: start: 20141205
  2. HYDREA [Concomitant]
     Active Substance: HYDROXYUREA
     Indication: THROMBOCYTOPENIA
     Dosage: 1 DF, QD
     Route: 065
  3. JANUMET [Concomitant]
     Active Substance: METFORMIN HYDROCHLORIDE\SITAGLIPTIN PHOSPHATE
     Indication: DIABETES MELLITUS
     Dosage: 1 DF, BID
     Route: 065
  4. PURAN [Concomitant]
     Active Substance: LEVOTHYROXINE SODIUM
     Indication: THYROID DISORDER
     Dosage: 1 DF, QD
     Route: 065
  5. PAMELOR [Suspect]
     Active Substance: NORTRIPTYLINE HYDROCHLORIDE
     Indication: PARKINSON^S DISEASE
     Dosage: 1 DF, BID
     Route: 065
  6. STALEVO [Suspect]
     Active Substance: CARBIDOPA\ENTACAPONE\LEVODOPA
     Indication: PRODUCT USED FOR UNKNOWN INDICATION
     Route: 065
  7. EXELON PATCH [Suspect]
     Active Substance: RIVASTIGMINE
     Indication: PARKINSON^S DISEASE
     Dosage: 4.6 MG (5 CM2), QD
     Route: 062

REACTIONS (6)
  - Gait disturbance [Recovering/Resolving]
  - Hallucination [Recovering/Resolving]
  - Speech disorder [Recovering/Resolving]
  - Sleep disorder [Recovering/Resolving]
  - Memory impairment [Recovering/Resolving]
  - Malaise [Recovering/Resolving]
